FAERS Safety Report 14333609 (Version 2)
Quarter: 2018Q1

REPORT INFORMATION
  Report Type: Spontaneous
  Country: FR (occurrence: FR)
  Receive Date: 20171228
  Receipt Date: 20180123
  Transmission Date: 20180509
  Serious: Yes (Hospitalization, Other)
  Sender: FDA-Public Use
  Company Number: FR-PFIZER INC-2017548541

PATIENT
  Age: 76 Year
  Sex: Male

DRUGS (12)
  1. CEFTAZIDIME. [Suspect]
     Active Substance: CEFTAZIDIME
     Indication: PSEUDOMONAL BACTERAEMIA
     Dosage: UNK
     Route: 041
     Dates: start: 20171111, end: 20171204
  2. KARDEGIC [Concomitant]
     Active Substance: ASPIRIN DL-LYSINE
     Dosage: 75 MG, DAILY
  3. ATENOLOL. [Concomitant]
     Active Substance: ATENOLOL
  4. LYRICA [Concomitant]
     Active Substance: PREGABALIN
     Dosage: UNK
  5. NOVORAPID [Concomitant]
     Active Substance: INSULIN ASPART
     Dosage: 4 IU, 2X/DAY (IN THE MORNING AND AT NOON)
  6. NOVOMIX [Concomitant]
     Active Substance: INSULIN ASPART
     Dosage: 40 IU IN THE MORNING
  7. CEFEPIME [Suspect]
     Active Substance: CEFEPIME HYDROCHLORIDE
     Indication: PSEUDOMONAL BACTERAEMIA
     Dosage: UNK
     Route: 041
     Dates: start: 20171107, end: 20171111
  8. PLAVIX [Concomitant]
     Active Substance: CLOPIDOGREL BISULFATE
     Dosage: UNK
  9. XARELTO [Concomitant]
     Active Substance: RIVAROXABAN
  10. LASILIX RETARD [Concomitant]
     Active Substance: FUROSEMIDE
     Dosage: UNK
  11. CRESTOR [Concomitant]
     Active Substance: ROSUVASTATIN CALCIUM
  12. PANTOPRAZOLE /01263204/ [Concomitant]
     Active Substance: PANTOPRAZOLE SODIUM
     Dosage: 20 MG, UNK

REACTIONS (5)
  - Confusional state [Not Recovered/Not Resolved]
  - Somnolence [Not Recovered/Not Resolved]
  - Acute kidney injury [Not Recovered/Not Resolved]
  - Anuria [Not Recovered/Not Resolved]
  - Overdose [Not Recovered/Not Resolved]

NARRATIVE: CASE EVENT DATE: 20171204
